FAERS Safety Report 4963452-4 (Version None)
Quarter: 2006Q2

REPORT INFORMATION
  Report Type: 
  Country: None (occurrence: None)
  Receive Date: 20060405
  Receipt Date: 20060328
  Transmission Date: 20061013
  Serious: Yes (Other)
  Sender: FDA-Public Use
  Company Number: 2006UW05438

PATIENT
  Age: 18 Year
  Sex: Male

DRUGS (3)
  1. SEROQUEL [Suspect]
     Indication: BIPOLAR DISORDER
     Route: 048
     Dates: start: 20040101
  2. DEPAKOTE [Concomitant]
  3. LITHIUM [Concomitant]

REACTIONS (3)
  - IRRITABILITY [None]
  - MEDICATION ERROR [None]
  - SUICIDAL IDEATION [None]
